FAERS Safety Report 25813261 (Version 1)
Quarter: 2025Q3

REPORT INFORMATION
  Report Type: Spontaneous
  Country: EU (occurrence: EU)
  Receive Date: 20250917
  Receipt Date: 20250917
  Transmission Date: 20251021
  Serious: Yes (Other)
  Sender: CIPLA
  Company Number: EU-CIPLA (EU) LIMITED-2025FR11398

PATIENT

DRUGS (2)
  1. ESOMEPRAZOLE [Suspect]
     Active Substance: ESOMEPRAZOLE
     Indication: Product administration error
     Dosage: 20 MILLIGRAM, QD
     Route: 048
     Dates: start: 20250716, end: 20250826
  2. ESCITALOPRAM [Suspect]
     Active Substance: ESCITALOPRAM OXALATE
     Indication: Depression
     Dosage: 20 MILLIGRAM, QD
     Route: 048

REACTIONS (3)
  - Depression [Recovering/Resolving]
  - Product dispensing error [Recovering/Resolving]
  - Product name confusion [Recovering/Resolving]

NARRATIVE: CASE EVENT DATE: 20250716
